FAERS Safety Report 5157801-4 (Version None)
Quarter: 2006Q4

REPORT INFORMATION
  Report Type: 
  Country: None (occurrence: None)
  Receive Date: 20061116
  Receipt Date: 20061103
  Transmission Date: 20070319
  Serious: Yes (Hospitalization)
  Sender: FDA-Public Use
  Company Number: 2006137623

PATIENT
  Age: 74 Year
  Sex: Female
  Weight: 112 kg

DRUGS (1)
  1. SUTENT [Suspect]
     Indication: RENAL CELL CARCINOMA STAGE UNSPECIFIED
     Dosage: 50 MG (50 MG, 1 IN 1 D), ORAL
     Route: 048
     Dates: start: 20031001

REACTIONS (3)
  - ASTHENIA [None]
  - LETHARGY [None]
  - URINARY TRACT DISORDER [None]
